FAERS Safety Report 25176117 (Version 1)
Quarter: 2025Q2

REPORT INFORMATION
  Report Type: Report from Study
  Country: GB (occurrence: GB)
  Receive Date: 20250409
  Receipt Date: 20250409
  Transmission Date: 20250717
  Serious: Yes (Hospitalization)
  Sender: CELLTRION
  Company Number: GB-CELLTRION INC.-2023GB012702

PATIENT

DRUGS (1)
  1. INFLIXIMAB-DYYB [Suspect]
     Active Substance: INFLIXIMAB-DYYB
     Indication: Colitis ulcerative
     Route: 058
     Dates: start: 202304

REACTIONS (6)
  - Cardiac disorder [Unknown]
  - Condition aggravated [Unknown]
  - Pain in extremity [Unknown]
  - Peripheral swelling [Unknown]
  - Ear infection [Unknown]
  - Intentional dose omission [Unknown]
